FAERS Safety Report 22526085 (Version 1)
Quarter: 2023Q2

REPORT INFORMATION
  Report Type: Spontaneous
  Country: US (occurrence: None)
  Receive Date: 20230605
  Receipt Date: 20230605
  Transmission Date: 20230722
  Serious: Yes (Hospitalization)
  Sender: FDA-Public Use
  Company Number: None

PATIENT
  Age: 65 Year
  Sex: Male

DRUGS (11)
  1. CAPECITABINE [Suspect]
     Active Substance: CAPECITABINE
     Indication: Cholangiocarcinoma
     Dosage: FREQUENCY : TWICE A DAY;?
     Route: 048
     Dates: start: 20230529
  2. LOSARTAN [Concomitant]
     Active Substance: LOSARTAN
  3. CLOTRIMAZOLE-BETAMETHASONE CRM [Concomitant]
  4. FAMOTIDINE [Concomitant]
     Active Substance: FAMOTIDINE
  5. HYDROMORPHONE [Concomitant]
     Active Substance: HYDROMORPHONE
  6. JARDIANCE [Concomitant]
     Active Substance: EMPAGLIFLOZIN
  7. METHADONE [Concomitant]
     Active Substance: METHADONE HYDROCHLORIDE
  8. OLANZAPINE [Concomitant]
     Active Substance: OLANZAPINE
  9. ONE TOUCH ULTRA BLUE TEST STR [Concomitant]
  10. POTASSIUM CHLORIDE [Concomitant]
     Active Substance: POTASSIUM CHLORIDE
  11. SUCRALFATE [Concomitant]

REACTIONS (3)
  - Asthenia [None]
  - Therapy interrupted [None]
  - Loss of consciousness [None]

NARRATIVE: CASE EVENT DATE: 20230531
